FAERS Safety Report 24571211 (Version 1)
Quarter: 2024Q4

REPORT INFORMATION
  Report Type: Spontaneous
  Country: GB (occurrence: GB)
  Receive Date: 20241101
  Receipt Date: 20241101
  Transmission Date: 20250114
  Serious: Yes (Other)
  Sender: AUROBINDO
  Company Number: GB-MYLANLABS-2024M1082642

PATIENT
  Sex: Female

DRUGS (3)
  1. CIPROFLOXACIN [Interacting]
     Active Substance: CIPROFLOXACIN
     Indication: Product used for unknown indication
     Dosage: UNK
     Route: 065
  2. CLOZARIL [Interacting]
     Active Substance: CLOZAPINE
     Indication: Schizophrenia
     Dosage: UNK
     Route: 048
     Dates: start: 20240209
  3. CLOZARIL [Interacting]
     Active Substance: CLOZAPINE
     Dosage: UNK (REDUCED DOSE)
     Route: 048

REACTIONS (4)
  - Adverse drug reaction [Recovering/Resolving]
  - Drug interaction [Unknown]
  - Anaemia [Recovered/Resolved]
  - Differential white blood cell count abnormal [Recovering/Resolving]
